FAERS Safety Report 10883968 (Version 6)
Quarter: 2016Q4

REPORT INFORMATION
  Report Type: Report from Study
  Country: BR (occurrence: BR)
  Receive Date: 20150304
  Receipt Date: 20161227
  Transmission Date: 20170206
  Serious: Yes (Hospitalization, Other)
  Sender: FDA-Public Use
  Company Number: BR-ROCHE-1547497

PATIENT
  Age: 53 Year
  Sex: Female
  Weight: 82 kg

DRUGS (9)
  1. XOLAIR [Suspect]
     Active Substance: OMALIZUMAB
     Indication: ASTHMA
     Dosage: 1.5 AMPULE
     Route: 058
     Dates: start: 20090331
  2. SERETIDE [Concomitant]
     Active Substance: FLUTICASONE PROPIONATE\SALMETEROL XINAFOATE
     Indication: ASTHMA
     Dosage: 500/50 UG
     Route: 055
  3. XOLAIR [Suspect]
     Active Substance: OMALIZUMAB
     Dosage: 150 MG, 1 AMPOLE AND HALF, TWICE PER MONTH
     Route: 058
     Dates: start: 201107, end: 201408
  4. FLIXONASE [Concomitant]
     Active Substance: FLUTICASONE PROPIONATE
     Indication: PROPHYLAXIS
     Dosage: (2 SPRAYS A DAY IN EACH NOSTRIL)
     Route: 045
     Dates: start: 201508
  5. PANTOPRAZOL [Concomitant]
     Active Substance: PANTOPRAZOLE SODIUM
     Indication: PROPHYLAXIS
     Dosage: 20 MG, BID
     Route: 048
  6. SPIRIVA [Concomitant]
     Active Substance: TIOTROPIUM BROMIDE MONOHYDRATE
     Indication: ASTHMA
     Dosage: 2.5 UG, QD, (2 ASPIRATIONS)
     Route: 055
     Dates: start: 201508
  7. XOLAIR [Suspect]
     Active Substance: OMALIZUMAB
     Dosage: 225 MG, BIW (EVERY TWO WEEKS)
     Route: 058
  8. METICORTEN [Concomitant]
     Active Substance: PREDNISONE
     Indication: DYSPNOEA
     Dosage: 20 MG, QD,(2 TABLETS IF EPISODE)
     Route: 048
  9. CROMOLERG [Concomitant]
     Indication: CATARACT
     Dosage: 1 DRP, QD (IN EACH EYE),4%
     Route: 047

REACTIONS (13)
  - Weight increased [Not Recovered/Not Resolved]
  - Asthma [Not Recovered/Not Resolved]
  - Respiratory failure [Unknown]
  - Depressed mood [Unknown]
  - Obesity [Unknown]
  - Fatigue [Not Recovered/Not Resolved]
  - Hypertension [Recovered/Resolved]
  - Blood potassium decreased [Unknown]
  - Influenza [Unknown]
  - Dysphonia [Unknown]
  - Fibromyalgia [Unknown]
  - White blood cell count increased [Unknown]
  - Pyrexia [Unknown]

NARRATIVE: CASE EVENT DATE: 201508
